FAERS Safety Report 5262690-3 (Version None)
Quarter: 2007Q1

REPORT INFORMATION
  Report Type: 
  Country: None (occurrence: None)
  Receive Date: 20070312
  Receipt Date: 20070227
  Transmission Date: 20070707
  Serious: Yes (Disabling)
  Sender: FDA-Public Use
  Company Number: 2007GB00256

PATIENT
  Age: 19310 Day
  Sex: Female
  Weight: 77 kg

DRUGS (4)
  1. CRESTOR [Suspect]
     Indication: HYPERCHOLESTEROLAEMIA
     Route: 048
     Dates: start: 20050707, end: 20061020
  2. ATENOLOL [Concomitant]
     Indication: HYPERTENSION
     Route: 048
     Dates: start: 20050707
  3. ESTRADERM [Concomitant]
     Indication: MENOPAUSE
     Route: 061
     Dates: start: 20020409
  4. ESOMEPRAZOLE MAGNESIUM [Concomitant]
     Indication: HIATUS HERNIA
     Route: 048
     Dates: start: 20031210

REACTIONS (1)
  - SERONEGATIVE ARTHRITIS [None]
